FAERS Safety Report 25803756 (Version 1)
Quarter: 2025Q3

REPORT INFORMATION
  Report Type: Spontaneous
  Country: CH (occurrence: CH)
  Receive Date: 20250915
  Receipt Date: 20250915
  Transmission Date: 20251021
  Serious: Yes (Hospitalization, Other)
  Sender: UCB
  Company Number: None

PATIENT
  Age: 67 Year
  Sex: Female
  Weight: 90 kg

DRUGS (9)
  1. VIMPAT [Suspect]
     Active Substance: LACOSAMIDE
     Indication: Epilepsy
     Route: 048
  2. LEVETIRACETAM [Suspect]
     Active Substance: LEVETIRACETAM
     Indication: Epilepsy
     Dosage: 1000 MILLIGRAM, 2X/DAY (BID)
     Route: 048
  3. CEFUROXIME [Suspect]
     Active Substance: CEFUROXIME
     Indication: Diverticulitis
     Dosage: 500 MILLIGRAM, 2X/DAY (BID)
     Route: 048
     Dates: start: 20250512, end: 20250516
  4. BEVACIZUMAB [Suspect]
     Active Substance: BEVACIZUMAB
     Indication: Glioblastoma
     Dosage: 400 MILLIGRAM, EV 3 WEEKS
     Route: 042
     Dates: start: 2017
  5. METRONIDAZOLE [Suspect]
     Active Substance: METRONIDAZOLE
     Indication: Diverticulitis
     Dosage: 500 MILLIGRAM, 3X/DAY (TID)
     Route: 048
     Dates: start: 20250512, end: 20250526
  6. VALPROATE SODIUM [Suspect]
     Active Substance: VALPROATE SODIUM
     Indication: Epilepsy
     Dosage: 500 MILLIGRAM, 2X/DAY (BID)
     Route: 048
  7. PREGABALIN [Suspect]
     Active Substance: PREGABALIN
     Indication: Epilepsy
     Route: 048
  8. CEFTRIAXONE [Suspect]
     Active Substance: CEFTRIAXONE
     Indication: Diverticulitis
     Dosage: 2000 MILLIGRAM, ONCE DAILY (QD)
     Route: 042
     Dates: start: 20250517, end: 20250526
  9. METAMIZOLE [Suspect]
     Active Substance: METAMIZOLE
     Indication: Abdominal pain
     Dosage: 500 MILLIGRAM, 3X/DAY (TID)
     Route: 048
     Dates: start: 20250517, end: 20250518

REACTIONS (3)
  - Thrombocytopenia [Unknown]
  - Neutropenia [Recovering/Resolving]
  - Product use issue [Unknown]

NARRATIVE: CASE EVENT DATE: 20250520
